FAERS Safety Report 6004806-7 (Version None)
Quarter: 2008Q4

REPORT INFORMATION
  Report Type: 
  Country: None (occurrence: None)
  Receive Date: 20081216
  Receipt Date: 20081212
  Transmission Date: 20090506
  Serious: Yes (Other)
  Sender: FDA-Public Use
  Company Number: JP-ABBOTT-08P-087-0492523-00

PATIENT
  Age: 67 Year
  Sex: Female

DRUGS (1)
  1. KLARICID TABLETS [Suspect]
     Indication: DRUG USE FOR UNKNOWN INDICATION
     Dosage: 200 MG TABLETS
     Route: 048
     Dates: start: 20080101, end: 20080101

REACTIONS (1)
  - DRUG ERUPTION [None]
